FAERS Safety Report 10902548 (Version 1)
Quarter: 2015Q1

REPORT INFORMATION
  Report Type: Spontaneous
  Country: FR (occurrence: FR)
  Receive Date: 20150310
  Receipt Date: 20150310
  Transmission Date: 20150721
  Serious: Yes (Hospitalization)
  Sender: FDA-Public Use
  Company Number: FR-ACTAVIS-2015-04540

PATIENT
  Age: 22 Year
  Sex: Female

DRUGS (3)
  1. KETOPROFENE ARROW [Suspect]
     Active Substance: KETOPROFEN
     Indication: PRODUCT USED FOR UNKNOWN INDICATION
     Dosage: UNK UNK, UNKNOWN
     Route: 048
     Dates: start: 20150203
  2. PARACETAMOL [Suspect]
     Active Substance: ACETAMINOPHEN
     Indication: PRODUCT USED FOR UNKNOWN INDICATION
     Dosage: 11 G, TOTAL
     Route: 048
     Dates: start: 20150203
  3. TRAMADOL ACTAVIS [Suspect]
     Active Substance: TRAMADOL
     Indication: PRODUCT USED FOR UNKNOWN INDICATION
     Dosage: UNK UNK, UNKNOWN
     Route: 048
     Dates: start: 20150203

REACTIONS (6)
  - Vomiting [Recovered/Resolved]
  - Headache [Recovered/Resolved]
  - Headache [None]
  - Poisoning deliberate [Recovered/Resolved]
  - Intentional product misuse [Recovered/Resolved]
  - Overdose [Recovered/Resolved]

NARRATIVE: CASE EVENT DATE: 20150203
